FAERS Safety Report 16400430 (Version 7)
Quarter: 2020Q1

REPORT INFORMATION
  Report Type: Report from Study
  Country: AT (occurrence: AT)
  Receive Date: 20190606
  Receipt Date: 20200210
  Transmission Date: 20200409
  Serious: Yes (Hospitalization)
  Sender: FDA-Public Use
  Company Number: AT-MYLANLABS-2018M1042511

PATIENT
  Age: 65 Year
  Sex: Female
  Weight: 89 kg

DRUGS (35)
  1. TRASTUZUMAB. [Suspect]
     Active Substance: TRASTUZUMAB
     Indication: HER-2 POSITIVE BREAST CANCER
     Dosage: 712 MILLIGRAM, Q3W/MOST RECENT DOSE:14/JUL/2017,08/JUN/2018,23/JUL/2018
     Route: 042
     Dates: start: 20170324, end: 20180723
  2. HERCEPTIN [Suspect]
     Active Substance: TRASTUZUMAB
     Indication: BREAST CANCER
     Dosage: 712 MG, Q3W
     Route: 042
     Dates: start: 20170324
  3. PERTUZUMAB. [Suspect]
     Active Substance: PERTUZUMAB
     Indication: HER-2 POSITIVE BREAST CANCER
  4. CONCOR [Concomitant]
     Active Substance: BISOPROLOL FUMARATE
     Dosage: UNK
     Route: 065
  5. NOVALGIN (METAMIZOLE SODIUM) [Concomitant]
     Active Substance: METAMIZOLE SODIUM
     Indication: DYSPNOEA EXERTIONAL
     Dosage: ONGOING = CHECKED
     Route: 065
     Dates: start: 20180715
  6. MOLAXOLE [Concomitant]
     Active Substance: POLYETHYLENE GLYCOL 3350\POTASSIUM CHLORIDE\SODIUM BICARBONATE\SODIUM CHLORIDE
     Dosage: ONGOING = CHECKED
     Route: 065
     Dates: start: 20180715
  7. ANDOL [Concomitant]
     Active Substance: ASPIRIN
     Indication: PRODUCT USED FOR UNKNOWN INDICATION
     Dosage: UNK
     Route: 065
  8. DEXAMETHASON                       /00016001/ [Concomitant]
     Active Substance: DEXAMETHASONE
     Indication: PRODUCT USED FOR UNKNOWN INDICATION
     Dosage: UNK
     Route: 065
     Dates: start: 20170414, end: 20170514
  9. ARIMIDEX [Suspect]
     Active Substance: ANASTROZOLE
     Indication: HER-2 POSITIVE BREAST CANCER
  10. FENISTIL [Concomitant]
     Active Substance: DIMETHINDENE
     Dosage: UNK
  11. FORTECORTIN                        /00016001/ [Concomitant]
     Active Substance: DEXAMETHASONE
     Dosage: UNK
  12. TRITAZIDE [Concomitant]
     Active Substance: HYDROCHLOROTHIAZIDE\RAMIPRIL
     Dosage: UNK
     Route: 065
  13. LOVENOX [Concomitant]
     Active Substance: ENOXAPARIN SODIUM
     Indication: DYSPNOEA EXERTIONAL
     Dosage: ONGOING = NOT CHECKED
     Route: 065
     Dates: start: 20180615, end: 20180713
  14. ARIMIDEX [Suspect]
     Active Substance: ANASTROZOLE
     Indication: BREAST CANCER METASTATIC
     Dosage: 1 MG, QD
     Route: 048
     Dates: start: 20170324, end: 20180514
  15. PERTUZUMAB. [Suspect]
     Active Substance: PERTUZUMAB
     Indication: BREAST CANCER METASTATIC
     Dosage: 840 MG, Q3W/MOST RECENT DOSE:14/JUL/2017,13/DEC/2017,23/JUL/2018
     Route: 042
     Dates: start: 20170324
  16. FOSTER [Concomitant]
     Active Substance: BECLOMETHASONE\FORMOTEROL
     Indication: DYSPNOEA
     Dosage: ONGOING = CHECKED
     Route: 065
     Dates: start: 20171120
  17. XGEVA [Concomitant]
     Active Substance: DENOSUMAB
     Indication: PRODUCT USED FOR UNKNOWN INDICATION
     Dosage: UNK
     Route: 065
     Dates: start: 20170505, end: 20180329
  18. FORTECORTIN                        /00016001/ [Concomitant]
     Active Substance: DEXAMETHASONE
     Indication: HER-2 POSITIVE BREAST CANCER
     Dosage: UNK
     Route: 065
     Dates: start: 20180723, end: 20181017
  19. CONCOR [Concomitant]
     Active Substance: BISOPROLOL FUMARATE
     Indication: HYPERTENSION
     Dosage: ONGOING = NOT CHECKED
     Route: 065
     Dates: start: 20171213, end: 20180715
  20. VIBRAMYCIN [Concomitant]
     Active Substance: DOXYCYCLINE
     Indication: SINUSITIS
     Dosage: UNK
     Route: 065
     Dates: start: 20180417, end: 20180615
  21. FORTECORTIN                        /00016001/ [Concomitant]
     Active Substance: DEXAMETHASONE
     Dosage: 840 MILLIGRAM, Q3W
     Dates: start: 20170324
  22. MEXALEN [Concomitant]
     Active Substance: ACETAMINOPHEN
     Dosage: ONGOING = CHECKED
     Route: 065
     Dates: start: 20180715
  23. TAXOTERE [Suspect]
     Active Substance: DOCETAXEL
     Indication: HER-2 POSITIVE BREAST CANCER
     Dosage: DATE OF MOST RECENT DOSE: 23/JUL/2018
     Route: 042
     Dates: start: 20180608
  24. TORASEMID [Concomitant]
     Active Substance: TORSEMIDE
     Indication: PRODUCT USED FOR UNKNOWN INDICATION
     Dosage: UNK
     Route: 065
  25. KYTRIL [Concomitant]
     Active Substance: GRANISETRON HYDROCHLORIDE
     Dosage: UNK
     Route: 065
     Dates: start: 20180608
  26. PANTOPRAZOLE [Concomitant]
     Active Substance: PANTOPRAZOLE
     Indication: PRODUCT USED FOR UNKNOWN INDICATION
     Dosage: UNK
     Route: 065
  27. CORTISON [Concomitant]
     Active Substance: CORTISONE ACETATE
     Dosage: UNK
     Route: 065
     Dates: start: 20180608, end: 20180608
  28. FORTECORTIN                        /00016001/ [Concomitant]
     Active Substance: DEXAMETHASONE
     Dosage: UNK
     Route: 042
     Dates: start: 20170714
  29. CAL D VITA [Concomitant]
     Dosage: UNK
     Route: 065
     Dates: start: 20170505
  30. AVELOX [Concomitant]
     Active Substance: MOXIFLOXACIN HYDROCHLORIDE
     Indication: DYSPNOEA EXERTIONAL
     Dosage: ONGOING = NOT CHECKED
     Route: 065
     Dates: start: 20180712, end: 20180722
  31. ACETYLSALICYLIC ACID [Concomitant]
     Active Substance: ASPIRIN
     Indication: HYPERTENSION
     Dosage: ONGOING = CHECKED
     Route: 065
     Dates: start: 20171120
  32. ULSAL [Concomitant]
     Active Substance: RANITIDINE HYDROCHLORIDE
     Indication: PRODUCT USED FOR UNKNOWN INDICATION
     Dosage: UNK
     Route: 065
     Dates: start: 20170414
  33. FENISTIL [Concomitant]
     Active Substance: DIMETHINDENE
     Indication: PRODUCT USED FOR UNKNOWN INDICATION
     Dosage: UNK
     Route: 065
     Dates: start: 20170414
  34. FORTECORTIN                        /00016001/ [Concomitant]
     Active Substance: DEXAMETHASONE
     Dosage: UNK
     Route: 042
     Dates: start: 20171213
  35. MEROPENEM. [Concomitant]
     Active Substance: MEROPENEM
     Indication: DYSPNOEA EXERTIONAL
     Dosage: ONGOING = NOT CHECKED
     Route: 065
     Dates: start: 20180705, end: 20180712

REACTIONS (12)
  - Paraesthesia [Recovered/Resolved]
  - Sinusitis [Recovered/Resolved]
  - Flank pain [Recovered/Resolved]
  - Pyrexia [Not Recovered/Not Resolved]
  - Renal pain [Recovered/Resolved]
  - Ejection fraction decreased [Recovering/Resolving]
  - Dyspnoea exertional [Recovered/Resolved]
  - Ill-defined disorder [Recovered/Resolved]
  - Pain [Recovered/Resolved]
  - Hypertension [Recovered/Resolved]
  - Diarrhoea [Recovered/Resolved]
  - Dyspnoea [Recovered/Resolved]

NARRATIVE: CASE EVENT DATE: 20171030
